FAERS Safety Report 5592439-6 (Version None)
Quarter: 2008Q1

REPORT INFORMATION
  Report Type: 
  Country: None (occurrence: None)
  Receive Date: 20080111
  Receipt Date: 20080102
  Transmission Date: 20080703
  Serious: Yes (Hospitalization)
  Sender: FDA-Public Use
  Company Number: 2008-00024

PATIENT
  Age: 60 Year
  Sex: Male
  Weight: 95 kg

DRUGS (2)
  1. VELCADE [Suspect]
     Indication: MULTIPLE MYELOMA
     Dosage: 1.30 MG/M2
  2. DEXAMETHASONE TAB [Concomitant]

REACTIONS (6)
  - ATRIAL FIBRILLATION [None]
  - DRUG TOXICITY [None]
  - FATIGUE [None]
  - RENAL FAILURE [None]
  - TACHYARRHYTHMIA [None]
  - TACHYCARDIA [None]
